FAERS Safety Report 4336398-2 (Version None)
Quarter: 2004Q2

REPORT INFORMATION
  Report Type: 
  Country: None (occurrence: None)
  Receive Date: 20040407
  Receipt Date: 20040323
  Transmission Date: 20050107
  Serious: Yes (Disabling)
  Sender: FDA-Public Use
  Company Number: 2004-01242

PATIENT
  Age: 17 Year
  Sex: Male

DRUGS (2)
  1. DOXYCYCLINE HYCLATE [Suspect]
     Indication: ACNE
     Dosage: 1 CAPSUL, BID X 30 DAYS, ORAL
     Route: 048
     Dates: start: 20040206, end: 20040307
  2. CLINDAMYCIN HYDROCHLORIDE [Concomitant]

REACTIONS (2)
  - DEAFNESS [None]
  - INFLAMMATION [None]
